FAERS Safety Report 4452741-8 (Version None)
Quarter: 2004Q3

REPORT INFORMATION
  Report Type: 
  Country: None (occurrence: None)
  Receive Date: 20040813
  Receipt Date: 20040430
  Transmission Date: 20050211
  Serious: No
  Sender: FDA-Public Use
  Company Number: S04-USA-02909-01

PATIENT
  Age: 80 Year
  Sex: Female

DRUGS (8)
  1. NAMENDA [Suspect]
     Indication: DEMENTIA
     Dosage: 10 MG BID PO
     Route: 048
     Dates: start: 20040219
  2. ASPIRIN [Concomitant]
  3. LIPITOR [Concomitant]
  4. MONOPRIL [Concomitant]
  5. PREMARIN [Concomitant]
  6. FOLIC ACID [Concomitant]
  7. DETROL LA [Concomitant]
  8. CALCIUM [Concomitant]

REACTIONS (2)
  - DYSKINESIA [None]
  - HYPERSOMNIA [None]
